FAERS Safety Report 9355636 (Version 2)
Quarter: 2013Q3

REPORT INFORMATION
  Report Type: Spontaneous
  Country: US (occurrence: US)
  Receive Date: 20130619
  Receipt Date: 20130704
  Transmission Date: 20140515
  Serious: Yes (Other)
  Sender: FDA-Public Use
  Company Number: US-BRISTOL-MYERS SQUIBB COMPANY-19001668

PATIENT
  Age: 80 Year
  Sex: Female
  Weight: 61.22 kg

DRUGS (1)
  1. WARFARIN SODIUM [Suspect]
     Indication: ATRIAL FIBRILLATION
     Dosage: 1DF:5 MG TAB ON TUES,THUR,SAT,SUN?1DF:2.5MG TAB ON MON,WED,FRI
     Route: 048

REACTIONS (3)
  - Breast cancer [Unknown]
  - Bone cancer [Unknown]
  - International normalised ratio increased [Unknown]
